FAERS Safety Report 4470263-5 (Version None)
Quarter: 2004Q4

REPORT INFORMATION
  Report Type: 
  Country: None (occurrence: None)
  Receive Date: 20041008
  Receipt Date: 20040930
  Transmission Date: 20050328
  Serious: Yes (Life-Threatening, Hospitalization)
  Sender: FDA-Public Use
  Company Number: US-MERCK-0410USA00007

PATIENT
  Age: 94 Year
  Sex: Female

DRUGS (8)
  1. ANUSOL SUPPOSITORIES/OINTMENT [Concomitant]
     Route: 065
  2. ARICEPT [Concomitant]
     Route: 065
  3. NEURONTIN [Concomitant]
     Route: 065
  4. ZYPREXA [Concomitant]
     Route: 065
  5. VIOXX [Suspect]
     Indication: PAIN IN EXTREMITY
     Route: 048
     Dates: start: 20040816, end: 20040922
  6. SENOKOT [Concomitant]
     Route: 065
  7. ZOLOFT [Concomitant]
     Route: 065
     Dates: end: 20040922
  8. DETROL [Concomitant]
     Route: 065
     Dates: end: 20040922

REACTIONS (10)
  - DYSARTHRIA [None]
  - DYSPHAGIA [None]
  - EYE ROLLING [None]
  - FEELING ABNORMAL [None]
  - FEELING HOT [None]
  - HYPERTENSION [None]
  - MENTAL STATUS CHANGES [None]
  - MOTOR DYSFUNCTION [None]
  - PULSE ABNORMAL [None]
  - WHEEZING [None]
